FAERS Safety Report 5569483-8 (Version None)
Quarter: 2007Q4

REPORT INFORMATION
  Report Type: 
  Country: None (occurrence: None)
  Receive Date: 20071220
  Receipt Date: 20071218
  Transmission Date: 20080405
  Serious: Yes (Other)
  Sender: FDA-Public Use
  Company Number: IN-SANOFI-SYNTHELABO-F01200701632

PATIENT
  Sex: Female

DRUGS (3)
  1. OXALIPLATIN [Suspect]
     Indication: COLORECTAL CANCER
     Route: 042
     Dates: start: 20071107, end: 20071107
  2. PAZOPANIB [Suspect]
     Route: 048
     Dates: start: 20071107, end: 20071107
  3. CAPECITABINE [Suspect]
     Dosage: TWICE DAILY, STARTING THE EVENING OF DAY 1 AND ENDING THE MORNING OF DAY 15, Q3W
     Route: 048
     Dates: start: 20071107, end: 20071107

REACTIONS (1)
  - MYOCARDIAL INFARCTION [None]
